FAERS Safety Report 11847480 (Version 1)
Quarter: 2015Q4

REPORT INFORMATION
  Report Type: Spontaneous
  Country: TR (occurrence: TR)
  Receive Date: 20151217
  Receipt Date: 20151217
  Transmission Date: 20160305
  Serious: Yes (Hospitalization)
  Sender: FDA-Public Use
  Company Number: TR-FRESENIUS KABI-FK201506615

PATIENT
  Age: 10 Year
  Sex: Female

DRUGS (2)
  1. PROPRANOLOL HYDROCHLORIDE (MANUFACTURER UNKNOWN) [Suspect]
     Active Substance: PROPRANOLOL HYDROCHLORIDE
     Indication: THYROID THERAPY
     Route: 065
  2. THIAMAZOLE [Suspect]
     Active Substance: METHIMAZOLE
     Indication: THYROID THERAPY
     Route: 065

REACTIONS (2)
  - Off label use [Unknown]
  - Angioedema [Unknown]
